FAERS Safety Report 11141026 (Version 1)
Quarter: 2015Q2

REPORT INFORMATION
  Report Type: Spontaneous
  Country: US (occurrence: US)
  Receive Date: 20150525
  Receipt Date: 20150525
  Transmission Date: 20150821
  Serious: No
  Sender: FDA-Public Use
  Company Number: US-JNJFOC-20121211062

PATIENT

DRUGS (1)
  1. RISPERIDONE. [Suspect]
     Active Substance: RISPERIDONE
     Indication: DEMENTIA ALZHEIMER^S TYPE
     Dosage: 0.5 MG OR 1 MG
     Route: 065

REACTIONS (4)
  - Drug effect incomplete [Unknown]
  - Condition aggravated [Unknown]
  - Adverse drug reaction [Unknown]
  - Therapeutic response decreased [Unknown]
